FAERS Safety Report 7157810-X (Version None)
Quarter: 2010Q4

REPORT INFORMATION
  Report Type: 
  Country: None (occurrence: None)
  Receive Date: 20101214
  Receipt Date: 20101201
  Transmission Date: 20110411
  Serious: Yes (Hospitalization)
  Sender: FDA-Public Use
  Company Number: ES-CELGENEUS-144-C5013-10120100

PATIENT
  Sex: Female
  Weight: 65 kg

DRUGS (13)
  1. THALIDOMIDE [Suspect]
     Indication: MULTIPLE MYELOMA
     Route: 048
     Dates: start: 20100302
  2. THALIDOMIDE [Suspect]
     Route: 048
     Dates: start: 20101111
  3. MELPHALAN HYDROCHLORIDE [Suspect]
     Indication: MULTIPLE MYELOMA
     Route: 065
     Dates: start: 20100302
  4. MELPHALAN HYDROCHLORIDE [Suspect]
     Route: 065
     Dates: start: 20101111
  5. PREDNISONE [Suspect]
     Indication: MULTIPLE MYELOMA
     Route: 065
     Dates: start: 20100302
  6. PREDNISONE [Suspect]
     Route: 065
     Dates: start: 20101111
  7. INNOHEP [Concomitant]
     Indication: THROMBOSIS PROPHYLAXIS
     Route: 065
  8. CALCIUM SANDOZ FORTE D [Concomitant]
     Route: 065
  9. ZOMETA [Concomitant]
     Route: 065
  10. TEGRETOL [Concomitant]
     Indication: TRIGEMINAL NEURALGIA
     Route: 065
  11. NEURONTIN [Concomitant]
     Indication: TRIGEMINAL NEURALGIA
     Route: 065
  12. VIMPAT [Concomitant]
     Indication: TRIGEMINAL NEURALGIA
     Route: 065
  13. SEGURIL [Concomitant]
     Indication: DIURETIC THERAPY
     Route: 065

REACTIONS (1)
  - NEURALGIA [None]
